FAERS Safety Report 16739014 (Version 3)
Quarter: 2019Q4

REPORT INFORMATION
  Report Type: Spontaneous
  Country: US (occurrence: US)
  Receive Date: 20190826
  Receipt Date: 20191011
  Transmission Date: 20200122
  Serious: Yes (Other)
  Sender: FDA-Public Use
  Company Number: US-SHIRE-US201927175

PATIENT
  Sex: Female

DRUGS (1)
  1. HYQVIA [Suspect]
     Active Substance: HUMAN IMMUNOGLOBULIN G\HYALURONIDASE RECOMBINANT HUMAN
     Indication: PRIMARY IMMUNODEFICIENCY SYNDROME
     Dosage: 60 GRAM, 1X A MONTH
     Route: 058
     Dates: start: 201908

REACTIONS (5)
  - Infusion site pain [Unknown]
  - Infusion site necrosis [Unknown]
  - Weight decreased [Unknown]
  - Skin exfoliation [Unknown]
  - Infusion site discolouration [Unknown]
